FAERS Safety Report 12539477 (Version 1)
Quarter: 2016Q3

REPORT INFORMATION
  Report Type: Spontaneous
  Country: US (occurrence: None)
  Receive Date: 20160707
  Receipt Date: 20160707
  Transmission Date: 20161109
  Serious: Yes (Other)
  Sender: FDA-Public Use
  Company Number: None

PATIENT
  Age: 43 Year
  Sex: Male
  Weight: 136.99 kg

DRUGS (2)
  1. ENTYVIO [Suspect]
     Active Substance: VEDOLIZUMAB
     Indication: CROHN^S DISEASE
     Dosage: 300 MG 0,2,6 WKS THEN 8WK INTRAVENOUS DRIP
     Route: 041
     Dates: start: 20160608, end: 20160621
  2. NORMAL SALINE [Concomitant]
     Active Substance: SODIUM CHLORIDE

REACTIONS (7)
  - Back pain [None]
  - Myalgia [None]
  - Rash [None]
  - Swollen tongue [None]
  - Condition aggravated [None]
  - Pyrexia [None]
  - Headache [None]

NARRATIVE: CASE EVENT DATE: 20160624
